FAERS Safety Report 5319169-X (Version None)
Quarter: 2007Q2

REPORT INFORMATION
  Report Type: 
  Country: None (occurrence: None)
  Receive Date: 20070508
  Receipt Date: 20070430
  Transmission Date: 20071010
  Serious: Yes (Hospitalization, Other)
  Sender: FDA-Public Use
  Company Number: DE-JNJFOC-20070401891

PATIENT
  Sex: Female
  Weight: 70 kg

DRUGS (4)
  1. HALDOL DECANOAT [Suspect]
     Indication: SCHIZOPHRENIA
     Route: 030
  2. AMITRIPTYLINE HCL [Concomitant]
     Indication: DEPRESSION
     Route: 048
  3. PANTOZOL [Concomitant]
     Indication: GASTRITIS
     Route: 048
  4. LASIX [Concomitant]
     Indication: CARDIAC FAILURE
     Route: 048

REACTIONS (1)
  - HEPATIC CIRRHOSIS [None]
